FAERS Safety Report 18239544 (Version 2)
Quarter: 2020Q3

REPORT INFORMATION
  Report Type: Report from Study
  Country: US (occurrence: US)
  Receive Date: 20200907
  Receipt Date: 20200914
  Transmission Date: 20201103
  Serious: Yes (Hospitalization, Other)
  Sender: FDA-Public Use
  Company Number: US-ROCHE-2639946

PATIENT
  Age: 54 Year
  Sex: Female
  Weight: 164.2 kg

DRUGS (11)
  1. RITUXIMAB. [Suspect]
     Active Substance: RITUXIMAB
     Route: 042
     Dates: start: 20200806
  2. NEULASTA [Concomitant]
     Active Substance: PEGFILGRASTIM
     Dates: start: 20200622
  3. IFOSFAMIDE. [Suspect]
     Active Substance: IFOSFAMIDE
     Route: 042
     Dates: start: 20200807
  4. ETOPOSIDE. [Suspect]
     Active Substance: ETOPOSIDE
     Route: 042
     Dates: start: 20200806
  5. IFOSFAMIDE. [Suspect]
     Active Substance: IFOSFAMIDE
     Indication: DIFFUSE LARGE B-CELL LYMPHOMA
     Dosage: 5000 MG/M2, D2 OF CYCLE, ONGOING: YES
     Route: 042
     Dates: start: 20200619
  6. ETOPOSIDE. [Suspect]
     Active Substance: ETOPOSIDE
     Indication: DIFFUSE LARGE B-CELL LYMPHOMA
     Dosage: 110 MG/M2, FOR 3 DAYS, ONGOING: YES
     Route: 042
     Dates: start: 20200619
  7. CARBOPLATIN. [Suspect]
     Active Substance: CARBOPLATIN
     Indication: DIFFUSE LARGE B-CELL LYMPHOMA
     Dosage: 10MG/ML, D2 OF CYCLE, ONGOING: YES
     Route: 042
     Dates: start: 20200619
  8. CARBOPLATIN. [Suspect]
     Active Substance: CARBOPLATIN
     Route: 042
     Dates: start: 20200807
  9. VENETOCLAX. [Suspect]
     Active Substance: VENETOCLAX
     Indication: DIFFUSE LARGE B-CELL LYMPHOMA
     Dosage: 5 DAYS, ONGOING: YES
     Route: 048
     Dates: start: 20200619
  10. VENETOCLAX. [Suspect]
     Active Substance: VENETOCLAX
     Route: 048
     Dates: start: 20200806
  11. RITUXIMAB. [Suspect]
     Active Substance: RITUXIMAB
     Indication: DIFFUSE LARGE B-CELL LYMPHOMA
     Dosage: 375 MG/M2, ONGOING: YES
     Route: 042
     Dates: start: 20200618

REACTIONS (7)
  - Mucosal inflammation [Recovered/Resolved]
  - Ill-defined disorder [Unknown]
  - Neutrophil count decreased [Unknown]
  - Chills [Unknown]
  - Vaginal haemorrhage [Recovered/Resolved]
  - Platelet count decreased [Unknown]
  - Headache [Unknown]

NARRATIVE: CASE EVENT DATE: 20200625
